FAERS Safety Report 7946737-9 (Version None)
Quarter: 2011Q4

REPORT INFORMATION
  Report Type: 
  Country: None (occurrence: None)
  Receive Date: 20111129
  Receipt Date: 20111125
  Transmission Date: 20120403
  Serious: Yes (Life-Threatening, Other)
  Sender: FDA-Public Use
  Company Number: PHHY2011JP103670

PATIENT
  Age: 70 Year
  Sex: Male

DRUGS (10)
  1. CEFEPIME [Concomitant]
     Dosage: 12 G, Q12H (ON DAYS 34-40)
     Route: 042
  2. MAGNESIUM OXIDE [Concomitant]
     Dosage: 500 MG, TID
  3. ACLARUBICIN [Concomitant]
     Dosage: 14 MG/M2, Q12H (ON DAYS 34-37)
     Route: 042
  4. RAMOSETRON [Concomitant]
     Dosage: 0.1 MG, QD (ON DAY 34-40)
  5. ACETAMINOPHEN [Concomitant]
     Dosage: 400 MG, (ON DAY 36)
     Route: 048
  6. CYTARABINE [Concomitant]
     Dosage: 10 MG/M2, Q12H (ON DAY 34-40)
     Route: 058
  7. LANSOPRAZOLE [Suspect]
  8. SUCRALFATE [Concomitant]
     Dosage: 900 MG, TID
     Route: 058
  9. VORICONAZOLE [Interacting]
     Indication: BRONCHOPULMONARY ASPERGILLOSIS
     Dosage: 200 MG, BID
     Route: 048
  10. SODIUM ALGINATE [Concomitant]
     Route: 048

REACTIONS (11)
  - ELECTROCARDIOGRAM QT PROLONGED [None]
  - HYPOMAGNESAEMIA [None]
  - VENTRICULAR TACHYCARDIA [None]
  - LOSS OF CONSCIOUSNESS [None]
  - PYREXIA [None]
  - TORSADE DE POINTES [None]
  - EXTRASYSTOLES [None]
  - ARRHYTHMIA [None]
  - BRONCHOPULMONARY ASPERGILLOSIS [None]
  - VENTRICULAR EXTRASYSTOLES [None]
  - DRUG INTERACTION [None]
